FAERS Safety Report 7321340-2 (Version None)
Quarter: 2011Q1

REPORT INFORMATION
  Report Type: 
  Country: None (occurrence: None)
  Receive Date: 20110228
  Receipt Date: 20100401
  Transmission Date: 20110831
  Serious: Yes (Other)
  Sender: FDA-Public Use
  Company Number: US-PFIZER INC-2010004455

PATIENT
  Sex: Female
  Weight: 73.469 kg

DRUGS (2)
  1. GEODON [Suspect]
     Indication: BIPOLAR DISORDER
     Dosage: 60 MG, UNK
     Dates: start: 20090101
  2. GEODON [Suspect]
     Dosage: 2 X 60 MG/DAY
     Dates: start: 20090601

REACTIONS (6)
  - CONVULSION [None]
  - OROPHARYNGEAL PAIN [None]
  - DIZZINESS [None]
  - DYSPEPSIA [None]
  - NASOPHARYNGITIS [None]
  - WEIGHT DECREASED [None]
